FAERS Safety Report 19273146 (Version 2)
Quarter: 2022Q1

REPORT INFORMATION
  Report Type: Spontaneous
  Country: DE (occurrence: DE)
  Receive Date: 20210519
  Receipt Date: 20220130
  Transmission Date: 20220423
  Serious: Yes (Life-Threatening, Hospitalization)
  Sender: FDA-Public Use
  Company Number: DE-DCGMA-21187661

PATIENT
  Age: 66 Year
  Sex: Male
  Weight: 93 kg

DRUGS (2)
  1. ATORVASTATIN [Suspect]
     Active Substance: ATORVASTATIN
     Indication: Product used for unknown indication
     Dosage: 40 MILLIGRAM, DAILY, DAILY DOSE: 40 MG MILLGRAM(S) EVERY DAYS
     Route: 048
  2. TICAGRELOR [Suspect]
     Active Substance: TICAGRELOR
     Indication: Myocardial infarction
     Dosage: 180 MILLIGRAM, DAILY, DAILY DOSE: 180 MG MILLGRAM(S) EVERY DAYS 2 SEPARATED DOSES
     Route: 048

REACTIONS (2)
  - Rhabdomyolysis [Not Recovered/Not Resolved]
  - Acute kidney injury [Not Recovered/Not Resolved]

NARRATIVE: CASE EVENT DATE: 20201201
